FAERS Safety Report 15419923 (Version 1)
Quarter: 2018Q3

REPORT INFORMATION
  Report Type: Spontaneous
  Country: US (occurrence: US)
  Receive Date: 20180924
  Receipt Date: 20180924
  Transmission Date: 20181010
  Serious: No
  Sender: FDA-Public Use
  Company Number: US-ADAMAS PHARMA, LLC-2018ADA01211

PATIENT
  Age: 71 Year
  Sex: Female

DRUGS (3)
  1. GOCOVRI [Suspect]
     Active Substance: AMANTADINE
     Dosage: UNK
     Dates: start: 20180606
  2. UNSPECIFIED LEVODOPA?BASED THERAPY [Concomitant]
  3. GOCOVRI [Suspect]
     Active Substance: AMANTADINE
     Indication: DYSKINESIA
     Dosage: 274 MG, 1X/DAY
     Dates: start: 201806

REACTIONS (2)
  - Depressed mood [Not Recovered/Not Resolved]
  - Dizziness postural [Recovered/Resolved]

NARRATIVE: CASE EVENT DATE: 201806
